FAERS Safety Report 10343902 (Version 1)
Quarter: 2014Q3

REPORT INFORMATION
  Report Type: Spontaneous
  Country: US (occurrence: US)
  Receive Date: 20140727
  Receipt Date: 20140727
  Transmission Date: 20150326
  Serious: No
  Sender: FDA-Public Use
  Company Number: US-009507513-1407USA008002

PATIENT
  Age: 14 Month
  Sex: Male

DRUGS (2)
  1. COPPERTONE WATER BABIES SPF 55 [Suspect]
     Active Substance: AVOBENZONE\HOMOSALATE\OCTISALATE\OCTOCRYLENE\OXYBENZONE
     Indication: PROPHYLAXIS AGAINST SOLAR RADIATION
     Dosage: UNK, PRN
     Route: 061
  2. COPPERTONE WATER BABIES SPF 55 [Suspect]
     Active Substance: AVOBENZONE\HOMOSALATE\OCTISALATE\OCTOCRYLENE\OXYBENZONE
     Dosage: UNK, UNKNOWN
     Route: 061
     Dates: start: 20140621

REACTIONS (5)
  - Lip swelling [Unknown]
  - Eye swelling [Unknown]
  - Swelling face [Unknown]
  - Burning sensation [Unknown]
  - Erythema [Unknown]
